FAERS Safety Report 24625026 (Version 1)
Quarter: 2024Q4

REPORT INFORMATION
  Report Type: Report from Study
  Country: US (occurrence: US)
  Receive Date: 20241115
  Receipt Date: 20241115
  Transmission Date: 20250115
  Serious: Yes (Other)
  Sender: ALEXION PHARMACEUTICALS
  Company Number: US-AstraZeneca-CH-00745448A

PATIENT

DRUGS (8)
  1. OLAPARIB [Suspect]
     Active Substance: OLAPARIB
     Dosage: UNK
  2. OLAPARIB [Suspect]
     Active Substance: OLAPARIB
     Dosage: UNK
  3. OLAPARIB [Suspect]
     Active Substance: OLAPARIB
     Dosage: UNK
  4. OLAPARIB [Suspect]
     Active Substance: OLAPARIB
     Dosage: UNK
  5. CLOBETASOL [Concomitant]
     Active Substance: CLOBETASOL
  6. CLOBETASOL [Concomitant]
     Active Substance: CLOBETASOL
     Route: 065
  7. ZOFRAN [Concomitant]
     Active Substance: ONDANSETRON HYDROCHLORIDE
  8. ZOFRAN [Concomitant]
     Active Substance: ONDANSETRON HYDROCHLORIDE
     Route: 065

REACTIONS (5)
  - Prostatic specific antigen increased [Unknown]
  - Nausea [Unknown]
  - Rash pruritic [Unknown]
  - Hot flush [Unknown]
  - Hyperhidrosis [Unknown]
